FAERS Safety Report 8469627-4 (Version None)
Quarter: 2012Q2

REPORT INFORMATION
  Report Type: 
  Country: None (occurrence: None)
  Receive Date: 20120626
  Receipt Date: 20120511
  Transmission Date: 20120825
  Serious: Yes (Other)
  Sender: FDA-Public Use
  Company Number: US-TEVA-335530USA

PATIENT
  Sex: Female
  Weight: 90.8 kg

DRUGS (3)
  1. QNASL [Suspect]
     Indication: SEASONAL ALLERGY
     Dosage: 160 MICROGRAM;
     Route: 045
     Dates: start: 20120423, end: 20120423
  2. SINGULAIR [Concomitant]
     Indication: SEASONAL ALLERGY
     Dosage: 10 MILLIGRAM;
     Route: 048
  3. PRILOSEC [Concomitant]
     Indication: GASTROOESOPHAGEAL REFLUX DISEASE
     Dosage: 20 MILLIGRAM;
     Route: 048

REACTIONS (4)
  - LOCAL SWELLING [None]
  - BURNING SENSATION MUCOSAL [None]
  - URTICARIA [None]
  - THROAT TIGHTNESS [None]
